FAERS Safety Report 7162084-X (Version None)
Quarter: 2010Q4

REPORT INFORMATION
  Report Type: 
  Country: None (occurrence: None)
  Receive Date: 20101215
  Receipt Date: 20101209
  Transmission Date: 20110411
  Serious: Yes (Hospitalization, Other)
  Sender: FDA-Public Use
  Company Number: BR-ROCHE-729324

PATIENT
  Sex: Female
  Weight: 43 kg

DRUGS (6)
  1. RIVOTRIL [Suspect]
     Indication: CONVULSION
     Dosage: DOSE: 2.5 MG/ML, FREQUENCY: 3 DROPS /DAY; OTHER INDICATION: TO SLEEP
     Route: 065
     Dates: start: 19670101
  2. LEXOTAN [Suspect]
     Indication: CONVULSION
     Route: 065
     Dates: start: 19670101
  3. BONIVA [Suspect]
     Indication: OSTEOPOROSIS
     Route: 065
     Dates: start: 20100914, end: 20101101
  4. EDHANOL [Concomitant]
     Indication: CONVULSION
  5. GINKGO BILOBA [Concomitant]
  6. MULTIVITAMIN [Concomitant]

REACTIONS (17)
  - ARTHRITIS [None]
  - BREAST CANCER [None]
  - CATARACT [None]
  - DRUG THERAPY [None]
  - DYSPEPSIA [None]
  - GASTROINTESTINAL DISORDER [None]
  - HEADACHE [None]
  - HYPERSENSITIVITY [None]
  - MEDICATION ERROR [None]
  - NAUSEA [None]
  - ORAL CANDIDIASIS [None]
  - ORAL DISCOMFORT [None]
  - OSTEOPOROSIS [None]
  - PAIN IN EXTREMITY [None]
  - PRURITUS GENERALISED [None]
  - SCLERODERMA [None]
  - SUFFOCATION FEELING [None]
